FAERS Safety Report 8574015-6 (Version None)
Quarter: 2012Q3

REPORT INFORMATION
  Report Type: 
  Country: None (occurrence: None)
  Receive Date: 20120806
  Receipt Date: 20120727
  Transmission Date: 20120928
  Serious: Yes (Other)
  Sender: FDA-Public Use
  Company Number: US-ASTRAZENECA-2011SE14629

PATIENT
  Age: 97 Year
  Sex: Female

DRUGS (1)
  1. NEXIUM [Suspect]
     Route: 048

REACTIONS (13)
  - GASTROINTESTINAL DISORDER [None]
  - OESOPHAGEAL PAIN [None]
  - GASTROOESOPHAGEAL REFLUX DISEASE [None]
  - NON-ALCOHOLIC STEATOHEPATITIS [None]
  - DIABETES MELLITUS [None]
  - GASTRIC POLYPS [None]
  - INTESTINAL POLYP [None]
  - SALIVARY HYPERSECRETION [None]
  - FATIGUE [None]
  - DYSPEPSIA [None]
  - VOMITING [None]
  - BRAIN NEOPLASM [None]
  - DRUG DOSE OMISSION [None]
